FAERS Safety Report 12793840 (Version 1)
Quarter: 2016Q3

REPORT INFORMATION
  Report Type: Spontaneous
  Country: US (occurrence: US)
  Receive Date: 20160929
  Receipt Date: 20160929
  Transmission Date: 20161109
  Serious: No
  Sender: FDA-Public Use
  Company Number: US-JAZZ-2016-US-011940

PATIENT
  Sex: Male

DRUGS (18)
  1. DULERA [Concomitant]
     Active Substance: FORMOTEROL FUMARATE DIHYDRATE\MOMETASONE FUROATE
  2. FARXIGA [Concomitant]
     Active Substance: DAPAGLIFLOZIN PROPANEDIOL
  3. FLUTICASONE PROPIONATE. [Concomitant]
     Active Substance: FLUTICASONE PROPIONATE
  4. RESVERATROL [Concomitant]
     Active Substance: RESVERATROL
  5. BENZONATATE. [Concomitant]
     Active Substance: BENZONATATE
  6. ASPIRIN. [Concomitant]
     Active Substance: ASPIRIN
  7. AZELASTINE HCL [Concomitant]
     Active Substance: AZELASTINE HYDROCHLORIDE
  8. CETIRIZINE HCL [Concomitant]
     Active Substance: CETIRIZINE HYDROCHLORIDE
  9. FENOFIBRIC ACID. [Concomitant]
     Active Substance: FENOFIBRIC ACID
  10. JANUVIA [Concomitant]
     Active Substance: SITAGLIPTIN PHOSPHATE
  11. NUVIGIL [Concomitant]
     Active Substance: ARMODAFINIL
  12. XYREM [Suspect]
     Active Substance: SODIUM OXYBATE
     Dosage: DOSE ADJUSTMENTS
     Route: 048
     Dates: start: 201604, end: 201606
  13. XYREM [Suspect]
     Active Substance: SODIUM OXYBATE
     Indication: NARCOLEPSY
     Dosage: 2.25 G, BID
     Route: 048
     Dates: start: 201603, end: 201604
  14. XYREM [Suspect]
     Active Substance: SODIUM OXYBATE
     Dosage: 4.5 G, BID
     Route: 048
     Dates: start: 201606
  15. CRESTOR [Concomitant]
     Active Substance: ROSUVASTATIN CALCIUM
  16. LOSARTAN POTASSIUM. [Concomitant]
     Active Substance: LOSARTAN POTASSIUM
  17. MONTELUKAST SODIUM. [Concomitant]
     Active Substance: MONTELUKAST SODIUM
  18. FISH OIL [Concomitant]
     Active Substance: FISH OIL

REACTIONS (5)
  - Wrong technique in product usage process [Unknown]
  - Feeling drunk [Not Recovered/Not Resolved]
  - Dizziness [Unknown]
  - Paraesthesia [Recovered/Resolved]
  - Vertigo [Not Recovered/Not Resolved]

NARRATIVE: CASE EVENT DATE: 2016
